FAERS Safety Report 9454696 (Version 1)
Quarter: 2013Q3

REPORT INFORMATION
  Report Type: Spontaneous
  Country: US (occurrence: None)
  Receive Date: 20130808
  Receipt Date: 20130808
  Transmission Date: 20140515
  Serious: Yes (Other)
  Sender: FDA-Public Use
  Company Number: 130256

PATIENT
  Age: 81 Year
  Sex: Female

DRUGS (2)
  1. SUPREP BOWEL PREP KIT [Suspect]
     Indication: COLONOSCOPY
     Dosage: 2 X 6OZ BOTTLE 1X PO
     Route: 048
     Dates: start: 20130721, end: 20130801
  2. METOPROLOL [Concomitant]

REACTIONS (1)
  - Haematochezia [None]
